FAERS Safety Report 4551482-6 (Version None)
Quarter: 2005Q1

REPORT INFORMATION
  Report Type: 
  Country: None (occurrence: None)
  Receive Date: 20050111
  Receipt Date: 20050111
  Transmission Date: 20050727
  Serious: Yes (Life-Threatening)
  Sender: FDA-Public Use
  Company Number: CST1571E210404DEC2004

PATIENT
  Age: 69 Year
  Sex: Male
  Weight: 79 kg

DRUGS (7)
  1. GLEEVEC [Suspect]
     Indication: INTERSTITIAL LUNG DISEASE
     Dosage: 600 MG DAILY BY MOUTH
     Dates: start: 20040204, end: 20050104
  2. QUININE [Concomitant]
  3. MULTIVITAMI [Concomitant]
  4. GLUCOSAMINE [Concomitant]
  5. CALCIUM GLUCONATE [Concomitant]
  6. ASPIRIN [Concomitant]
  7. ZETIA [Concomitant]

REACTIONS (3)
  - CONDITION AGGRAVATED [None]
  - MIGRAINE [None]
  - SUBDURAL HAEMATOMA [None]
